FAERS Safety Report 9158102 (Version 1)
Quarter: 2013Q1

REPORT INFORMATION
  Report Type: Report from Study
  Country: ES (occurrence: ES)
  Receive Date: 20130312
  Receipt Date: 20130312
  Transmission Date: 20140127
  Serious: Yes (Hospitalization, Other)
  Sender: FDA-Public Use
  Company Number: ES-PFIZER INC-2013009944

PATIENT
  Age: 62 Year
  Sex: Male
  Weight: 89 kg

DRUGS (17)
  1. AXITINIB [Suspect]
     Indication: CLEAR CELL RENAL CELL CARCINOMA
     Dosage: 5 MG, 2X/DAY
     Route: 048
     Dates: start: 20121217, end: 20121221
  2. AXITINIB [Suspect]
     Dosage: 2.5 MG, 2X/DAY
     Route: 048
     Dates: start: 20121221, end: 20130104
  3. DOXAZOSIN [Concomitant]
     Dosage: 8 MG, 1X/DAY
     Route: 048
  4. GLIMEPIRIDE [Concomitant]
     Dosage: 2 MG, 1X/DAY
     Route: 048
  5. LORAZEPAM [Concomitant]
     Dosage: 1 MG, 1X/DAY
     Route: 048
  6. OMEPRAZOLE [Concomitant]
     Dosage: 20 MG, 1X/DAY
     Route: 048
  7. ACETAMINOPHEN [Concomitant]
     Dosage: 1 G, 1X/DAY
     Route: 048
     Dates: end: 20121221
  8. ACETAMINOPHEN [Concomitant]
     Dosage: 1 G, AS NEEDED
     Route: 048
     Dates: start: 20121221
  9. METAMIZOLE [Concomitant]
     Dosage: 575 MG, 3X/DAY
     Route: 048
     Dates: end: 20121221
  10. METAMIZOLE [Concomitant]
     Dosage: 575 MG, AS NEEDED
     Route: 048
     Dates: start: 20121221
  11. CODEISAN [Concomitant]
     Dosage: 30 MG, 4X/DAY
     Route: 048
     Dates: end: 20121221
  12. FERROGRADUMET [Concomitant]
     Dosage: 525 MG, 1X/DAY
     Route: 048
  13. PROTEIN SUPPLEMENTS [Concomitant]
     Dosage: 250 ML, 3X/DAY
     Route: 048
  14. DEXAMETHASONE [Concomitant]
     Dosage: 4 MG, 1X/DAY
     Route: 048
     Dates: start: 20121221
  15. TRAMADOL [Concomitant]
     Dosage: 50 MG, 3X/DAY
     Route: 048
     Dates: start: 20121221
  16. FUROSEMIDE [Concomitant]
     Dosage: 20 MG, 1X/DAY
     Route: 048
     Dates: start: 20121226
  17. ZOLPIDEM [Concomitant]
     Dosage: 5 MG, 1X/DAY
     Route: 048
     Dates: start: 20130104

REACTIONS (7)
  - Hepatotoxicity [Not Recovered/Not Resolved]
  - Asthenia [Not Recovered/Not Resolved]
  - Abdominal pain upper [Not Recovered/Not Resolved]
  - Back pain [Not Recovered/Not Resolved]
  - Pyrexia [Recovered/Resolved]
  - Decreased appetite [Unknown]
  - Oedema peripheral [Not Recovered/Not Resolved]
